FAERS Safety Report 25026882 (Version 2)
Quarter: 2025Q4

REPORT INFORMATION
  Report Type: Spontaneous
  Country: US (occurrence: US)
  Receive Date: 20250301
  Receipt Date: 20251015
  Transmission Date: 20260118
  Serious: No
  Sender: SANOFI AVENTIS
  Company Number: US-SA-2025SA055749

PATIENT
  Age: 41 Year
  Sex: Male

DRUGS (12)
  1. DUPIXENT [Suspect]
     Active Substance: DUPILUMAB
     Indication: Dermatitis atopic
     Dosage: 300 MG, QOW
     Route: 058
     Dates: start: 20220324
  2. DUPIXENT [Suspect]
     Active Substance: DUPILUMAB
     Dosage: 600 MG, 1X
     Route: 058
     Dates: start: 202410, end: 202410
  3. DUPIXENT [Suspect]
     Active Substance: DUPILUMAB
     Dosage: 300 MG, Q4W
     Route: 058
     Dates: start: 2024
  4. AZITHROMYCIN [Concomitant]
     Active Substance: AZITHROMYCIN
  5. BUSPIRONE [Concomitant]
     Active Substance: BUSPIRONE HYDROCHLORIDE
  6. CLOBETASOL [Concomitant]
     Active Substance: CLOBETASOL
     Dosage: UNK
  7. FLUVOXAMINE [Concomitant]
     Active Substance: FLUVOXAMINE
  8. PIMECROLIMUS [Concomitant]
     Active Substance: PIMECROLIMUS
     Dosage: UNK
  9. PREDNISONE [Concomitant]
     Active Substance: PREDNISONE
  10. PREDNISONE [Concomitant]
     Active Substance: PREDNISONE
  11. TADALAFIL [Concomitant]
     Active Substance: TADALAFIL
  12. TADALAFIL [Concomitant]
     Active Substance: TADALAFIL

REACTIONS (4)
  - Drug ineffective [Unknown]
  - Product dose omission in error [Unknown]
  - Inappropriate schedule of product administration [Unknown]
  - Product prescribing issue [Unknown]

NARRATIVE: CASE EVENT DATE: 20240101
